FAERS Safety Report 20654031 (Version 1)
Quarter: 2022Q1

REPORT INFORMATION
  Report Type: Spontaneous
  Country: DE (occurrence: None)
  Receive Date: 20220330
  Receipt Date: 20220330
  Transmission Date: 20220423
  Serious: Yes (Other)
  Sender: FDA-Public Use
  Company Number: DE-ROCHE-2948059

PATIENT
  Age: 12 Year
  Sex: Female
  Weight: 52 kg

DRUGS (11)
  1. EVRYSDI [Suspect]
     Active Substance: RISDIPLAM
     Indication: Spinal muscular atrophy
     Route: 048
     Dates: start: 202109, end: 20220210
  2. MELATONIN [Concomitant]
     Active Substance: MELATONIN
  3. VANCOMYCIN [Concomitant]
     Active Substance: VANCOMYCIN
  4. FUROSEMIDE [Concomitant]
     Active Substance: FUROSEMIDE
  5. PANTOPRAZOLE [Concomitant]
     Active Substance: PANTOPRAZOLE
  6. ALBUTEROL [Concomitant]
     Active Substance: ALBUTEROL
  7. CEFOTAXIME [Concomitant]
     Active Substance: CEFOTAXIME SODIUM
     Dosage: TOGETHER WITH GENTAMICIN
  8. GENTAMICIN [Concomitant]
     Active Substance: GENTAMICIN
     Dosage: TOGETHER WITH CEFOTAXIM
  9. URSODIOL [Concomitant]
     Active Substance: URSODIOL
  10. FRAGMIN [Concomitant]
     Active Substance: DALTEPARIN SODIUM
  11. ACETAMINOPHEN [Concomitant]
     Active Substance: ACETAMINOPHEN

REACTIONS (5)
  - Pneumonia viral [Unknown]
  - Hepatic failure [Recovering/Resolving]
  - Coagulopathy [Recovering/Resolving]
  - Disease progression [Unknown]
  - Drug ineffective [Unknown]

NARRATIVE: CASE EVENT DATE: 20211029
